FAERS Safety Report 9267624 (Version 1)
Quarter: 2013Q2

REPORT INFORMATION
  Report Type: Spontaneous
  Country: US (occurrence: US)
  Receive Date: 20130502
  Receipt Date: 20130502
  Transmission Date: 20140414
  Serious: Yes (Other)
  Sender: FDA-Public Use
  Company Number: US-FRI-1000041674

PATIENT
  Sex: Male

DRUGS (1)
  1. ARMOUR THYROID [Suspect]
     Dosage: 120 MG

REACTIONS (3)
  - Cardiac flutter [Unknown]
  - Drug effect decreased [Unknown]
  - Drug effect increased [Unknown]
